FAERS Safety Report 6564534-6 (Version None)
Quarter: 2010Q1

REPORT INFORMATION
  Report Type: 
  Country: None (occurrence: None)
  Receive Date: 20100201
  Receipt Date: 20100120
  Transmission Date: 20100710
  Serious: Yes (Hospitalization, Other)
  Sender: FDA-Public Use
  Company Number: US-ELI_LILLY_AND_COMPANY-US201001004476

PATIENT
  Sex: Female

DRUGS (8)
  1. EVISTA [Suspect]
     Indication: OSTEOPOROSIS
     Dosage: 60 MG, DAILY (1/D)
     Route: 065
     Dates: start: 19900101
  2. INDERAL [Concomitant]
     Dosage: UNK, UNKNOWN
     Route: 065
  3. ALDACTAZIDE [Concomitant]
     Dosage: UNK, UNKNOWN
     Route: 065
  4. CELEBREX [Concomitant]
     Dosage: UNK, UNKNOWN
     Route: 065
  5. RHEUMATREX [Concomitant]
     Dosage: UNK, UNKNOWN
     Route: 065
  6. DETROL [Concomitant]
     Dosage: UNK, UNKNOWN
     Route: 065
  7. FOLIC ACID [Concomitant]
     Dosage: UNK, UNKNOWN
     Route: 065
  8. POTASSIUM [Concomitant]
     Dosage: UNK, UNKNOWN
     Route: 065

REACTIONS (7)
  - ARTHRITIS [None]
  - CONSTIPATION [None]
  - DEHYDRATION [None]
  - DRY MOUTH [None]
  - HERNIA [None]
  - HODGKIN'S DISEASE [None]
  - JOINT DESTRUCTION [None]
